FAERS Safety Report 4487904-9 (Version None)
Quarter: 2004Q4

REPORT INFORMATION
  Report Type: 
  Country: None (occurrence: None)
  Receive Date: 20041025
  Receipt Date: 20041008
  Transmission Date: 20050328
  Serious: Yes (Other)
  Sender: FDA-Public Use
  Company Number: 239734

PATIENT
  Age: 77 Year
  Sex: Female
  Weight: 61.7 kg

DRUGS (5)
  1. NOVOLOG MIX 70/30 [Suspect]
     Indication: INSULIN-REQUIRING TYPE II DIABETES MELLITUS
     Dosage: SEE IMAGE
     Route: 058
     Dates: start: 20040921, end: 20040921
  2. NOVOLOG MIX 70/30 [Suspect]
     Indication: INSULIN-REQUIRING TYPE II DIABETES MELLITUS
     Dosage: SEE IMAGE
     Route: 058
     Dates: start: 20040922
  3. PLAVIX [Concomitant]
  4. PROCRIT [Concomitant]
  5. ZOCOR [Concomitant]

REACTIONS (3)
  - ANAEMIA [None]
  - FALL [None]
  - SYNCOPE [None]
